FAERS Safety Report 4360963-X (Version None)
Quarter: 2004Q2

REPORT INFORMATION
  Report Type: 
  Country: None (occurrence: None)
  Receive Date: 20040517
  Receipt Date: 20040507
  Transmission Date: 20050107
  Serious: Yes (Hospitalization)
  Sender: FDA-Public Use
  Company Number: STA-AE-04-MTX-097

PATIENT
  Age: 32 Year
  Sex: Female

DRUGS (6)
  1. METHOTREXATE [Suspect]
     Indication: PSORIASIS
     Dosage: 15 MG 1 X PER 1 W, ORAL
     Route: 048
     Dates: start: 20020101, end: 20040209
  2. PARIET (RABEPRAZOLE) [Suspect]
     Indication: GASTRIC ULCER
     Dosage: SEE IMAGE
     Route: 048
     Dates: start: 20040107, end: 20040113
  3. PARIET (RABEPRAZOLE) [Suspect]
     Indication: GASTRIC ULCER
     Dosage: SEE IMAGE
     Route: 048
     Dates: start: 20040121, end: 20040203
  4. HYPEN (ETODOLAC) [Concomitant]
  5. LOXONIN (LOXOPROFEN SODIUM) [Concomitant]
  6. VOLTAREN [Concomitant]

REACTIONS (3)
  - AGRANULOCYTOSIS [None]
  - LYMPHOCYTE STIMULATION TEST POSITIVE [None]
  - PANCYTOPENIA [None]
